FAERS Safety Report 26020855 (Version 2)
Quarter: 2025Q4

REPORT INFORMATION
  Report Type: Spontaneous
  Country: GB (occurrence: GB)
  Receive Date: 20251110
  Receipt Date: 20251113
  Transmission Date: 20260118
  Serious: Yes (Death, Life-Threatening, Hospitalization, Disabling, Other)
  Sender: ELI LILLY AND COMPANY
  Company Number: None

PATIENT
  Age: 58 Year
  Sex: Female

DRUGS (13)
  1. BARICITINIB [Suspect]
     Active Substance: BARICITINIB
     Indication: Rheumatoid arthritis
     Dosage: 4 MG, DAILY
     Route: 065
     Dates: start: 20220907
  2. NINTEDANIB [Suspect]
     Active Substance: NINTEDANIB
     Indication: Product used for unknown indication
     Dosage: 150 MG, BID
     Route: 065
  3. ONDANSETRON [Concomitant]
     Active Substance: ONDANSETRON
     Indication: Nausea
     Dosage: UNK UNK, UNKNOWN
     Route: 065
  4. MORPHINE [Concomitant]
     Active Substance: MORPHINE
     Indication: Pain
     Dosage: UNK UNK, UNKNOWN
     Route: 065
  5. SULFASALAZINE [Concomitant]
     Active Substance: SULFASALAZINE
     Indication: Product used for unknown indication
     Dosage: UNK UNK, UNKNOWN
     Route: 065
  6. LEVOTHYROXINE [Concomitant]
     Active Substance: LEVOTHYROXINE
     Indication: Product used for unknown indication
     Dosage: UNK UNK, UNKNOWN
     Route: 065
  7. HYDROXYZINE [Concomitant]
     Active Substance: HYDROXYZINE HYDROCHLORIDE
     Indication: Product used for unknown indication
     Dosage: UNK UNK, UNKNOWN
     Route: 065
  8. CARBOCYSTEINE [Concomitant]
     Active Substance: CARBOCYSTEINE
     Indication: Product used for unknown indication
     Dosage: UNK UNK, UNKNOWN
     Route: 065
  9. ATORVASTATIN [Concomitant]
     Active Substance: ATORVASTATIN
     Indication: Product used for unknown indication
     Dosage: UNK UNK, UNKNOWN
     Route: 065
  10. QUININE [Concomitant]
     Active Substance: QUININE
     Indication: Product used for unknown indication
     Dosage: UNK UNK, UNKNOWN
     Route: 065
  11. HYDROXYCHLOROQUINE [Concomitant]
     Active Substance: HYDROXYCHLOROQUINE
     Indication: Product used for unknown indication
     Dosage: UNK UNK, UNKNOWN
     Route: 065
  12. CARBOPLATIN [Concomitant]
     Active Substance: CARBOPLATIN
     Indication: Product used for unknown indication
     Dosage: UNK, UNKNOWN
     Route: 065
  13. PACLITAXEL [Concomitant]
     Active Substance: PACLITAXEL
     Indication: Product used for unknown indication
     Dosage: UNK, UNKNOWN
     Route: 065

REACTIONS (1)
  - Ovarian cancer [Fatal]
